FAERS Safety Report 9687970 (Version 1)
Quarter: 2013Q4

REPORT INFORMATION
  Report Type: Spontaneous
  Country: AT (occurrence: AT)
  Receive Date: 20131114
  Receipt Date: 20131114
  Transmission Date: 20140711
  Serious: Yes (Other)
  Sender: FDA-Public Use
  Company Number: PHHY2013AT128262

PATIENT
  Sex: Female

DRUGS (10)
  1. ZOMETA [Suspect]
     Indication: METASTASES TO BONE
     Dosage: UNK UKN, UNK
     Dates: start: 201101
  2. ZOMETA [Suspect]
     Dosage: UNK UKN, UNK
     Dates: start: 20120227
  3. AVASTIN [Concomitant]
     Dosage: UNK UKN, UNK
  4. CARBO//CARBOCISTEINE [Concomitant]
     Dosage: UNK UKN, UNK
     Dates: end: 201108
  5. TAXOL [Concomitant]
     Dosage: UNK UKN, UNK
     Dates: end: 201108
  6. HALAVEN [Concomitant]
     Dosage: UNK UKN, UNK
     Dates: start: 201112
  7. HALAVEN [Concomitant]
     Dosage: UNK UKN, UNK
     Dates: start: 20120220
  8. REMOVAB [Concomitant]
     Dosage: UNK UKN, UNK
     Dates: start: 201202
  9. REMOVAB [Concomitant]
     Dosage: UNK UKN, UNK
     Dates: start: 20120323
  10. GEMZAR [Concomitant]
     Dosage: UNK UKN, UNK

REACTIONS (9)
  - Breast cancer [Unknown]
  - Malignant neoplasm progression [Unknown]
  - Metastases to bone [Unknown]
  - Metastases to liver [Unknown]
  - Metastases to peritoneum [Unknown]
  - Ascites [Unknown]
  - Ileus [Unknown]
  - Subileus [Unknown]
  - General physical health deterioration [Unknown]
